FAERS Safety Report 7502971-3 (Version None)
Quarter: 2011Q2

REPORT INFORMATION
  Report Type: 
  Country: None (occurrence: None)
  Receive Date: 20110525
  Receipt Date: 20110516
  Transmission Date: 20111010
  Serious: Yes (Hospitalization, Disabling)
  Sender: FDA-Public Use
  Company Number: BR-ASTRAZENECA-2011SE29765

PATIENT
  Age: 611 Month
  Sex: Male
  Weight: 116 kg

DRUGS (2)
  1. MICARDIS HCT [Concomitant]
     Indication: HYPERTENSION
     Dosage: 80/12.5 MG DAILY
     Route: 048
     Dates: start: 20110301
  2. NEXIUM [Suspect]
     Indication: GASTRITIS
     Route: 048
     Dates: end: 20110201

REACTIONS (3)
  - CLAVICLE FRACTURE [None]
  - RIB FRACTURE [None]
  - ROAD TRAFFIC ACCIDENT [None]
